FAERS Safety Report 17052530 (Version 1)
Quarter: 2019Q4

REPORT INFORMATION
  Report Type: Spontaneous
  Country: RS (occurrence: RS)
  Receive Date: 20191120
  Receipt Date: 20191120
  Transmission Date: 20200122
  Serious: Yes (Other)
  Sender: FDA-Public Use
  Company Number: RS-TEVA-2019-RS-1139273

PATIENT
  Age: 69 Year
  Sex: Male

DRUGS (8)
  1. NEVOTENS [Suspect]
     Active Substance: NEBIVOLOL HYDROCHLORIDE
     Dosage: 1/2+0+0
     Route: 048
  2. ANTIAGREX [Suspect]
     Active Substance: CLOPIDOGREL BISULFATE
     Dosage: 75 MILLIGRAM DAILY; 1+0+0
     Route: 048
  3. ANDOL [Suspect]
     Active Substance: ASPIRIN
     Dosage: 100 MILLIGRAM DAILY; 0+0+1
     Route: 048
  4. PANRAZOL [Suspect]
     Active Substance: PANTOPRAZOLE SODIUM
     Dosage: 40 MILLIGRAM DAILY; 20 MG 2X1
     Route: 048
  5. ATACOR [Suspect]
     Active Substance: ATORVASTATIN CALCIUM
     Dosage: 20 MILLIGRAM DAILY; 0+0+1
     Route: 048
  6. LEVEMIR [Concomitant]
     Active Substance: INSULIN DETEMIR
     Dosage: FP 44-47 J S.C. AT 10P.M
     Route: 058
  7. VIVACE (RAMIPRIL) [Suspect]
     Active Substance: RAMIPRIL
     Dosage: 10 MILLIGRAM DAILY; 5 MG 2X1
     Route: 048
  8. NOVORAPID [Concomitant]
     Active Substance: INSULIN ASPART
     Dosage: FP 8-10+ 12-14+ 9 -11J S.C. BEFORE MEEL
     Route: 058

REACTIONS (6)
  - Cough [Recovered/Resolved]
  - Asphyxia [Recovered/Resolved]
  - Hypertension [Recovered/Resolved]
  - Syncope [Recovered/Resolved]
  - Chest discomfort [Recovered/Resolved]
  - Headache [Recovered/Resolved]
